FAERS Safety Report 14325766 (Version 1)
Quarter: 2017Q4

REPORT INFORMATION
  Report Type: Spontaneous
  Country: US (occurrence: US)
  Receive Date: 20171226
  Receipt Date: 20171226
  Transmission Date: 20180321
  Serious: No
  Sender: FDA-Public Use
  Company Number: US-009507513-1712USA008068

PATIENT
  Age: 22 Year
  Sex: Female
  Weight: 46.26 kg

DRUGS (4)
  1. AMOXICILLIN. [Concomitant]
     Active Substance: AMOXICILLIN
  2. TYLENOL [Concomitant]
     Active Substance: ACETAMINOPHEN
  3. NEXPLANON [Suspect]
     Active Substance: ETONOGESTREL
     Indication: CONTRACEPTION
     Dosage: 3 YEARS IMPLANT. LEFT ARM
     Route: 059
  4. IBUPROFEN. [Concomitant]
     Active Substance: IBUPROFEN

REACTIONS (5)
  - Device breakage [Not Recovered/Not Resolved]
  - Implant site bruising [Unknown]
  - Pain in extremity [Unknown]
  - Implant site pain [Unknown]
  - Implant site irritation [Unknown]

NARRATIVE: CASE EVENT DATE: 201712
